FAERS Safety Report 19073956 (Version 1)
Quarter: 2021Q1

REPORT INFORMATION
  Report Type: Spontaneous
  Country: CA (occurrence: CA)
  Receive Date: 20210330
  Receipt Date: 20210330
  Transmission Date: 20210420
  Serious: Yes (Life-Threatening, Hospitalization)
  Sender: FDA-Public Use
  Company Number: CA-ASTRAZENECA-2021A219679

PATIENT
  Age: 87 Year
  Sex: Female

DRUGS (5)
  1. ADALAT XL ? SRT [Concomitant]
  2. CALQUENCE [Suspect]
     Active Substance: ACALABRUTINIB
     Dosage: UNKNOWN
     Route: 048
  3. CITALOPRAM [Concomitant]
     Active Substance: CITALOPRAM HYDROBROMIDE
  4. CEFUROXIME. [Concomitant]
     Active Substance: CEFUROXIME
  5. ZOPICLONE [Concomitant]
     Active Substance: ZOPICLONE

REACTIONS (2)
  - Aortic dissection [Recovered/Resolved]
  - Penetrating aortic ulcer [Recovered/Resolved]
